FAERS Safety Report 21040925 (Version 1)
Quarter: 2022Q3

REPORT INFORMATION
  Report Type: Spontaneous
  Country: FR (occurrence: FR)
  Receive Date: 20220704
  Receipt Date: 20220704
  Transmission Date: 20221026
  Serious: Yes (Other)
  Sender: FDA-Public Use
  Company Number: None

PATIENT
  Age: 69 Year
  Sex: Female
  Weight: 42 kg

DRUGS (11)
  1. LUTATHERA [Suspect]
     Active Substance: LUTETIUM OXODOTREOTIDE LU-177
     Indication: Small intestine neuroendocrine tumour
     Dosage: 7499 MBQ
     Route: 065
     Dates: start: 20210928, end: 20210928
  2. LUTATHERA [Suspect]
     Active Substance: LUTETIUM OXODOTREOTIDE LU-177
     Dosage: 7499 MBQ (370 MBQ/ML)
     Route: 065
     Dates: start: 20211125, end: 20211125
  3. LUTATHERA [Suspect]
     Active Substance: LUTETIUM OXODOTREOTIDE LU-177
     Dosage: 7499 MBQ
     Route: 065
     Dates: start: 20220126, end: 20220126
  4. ARGININE\LYSINE [Suspect]
     Active Substance: ARGININE\LYSINE
     Indication: Small intestine neuroendocrine tumour
     Dosage: 1 L
     Route: 065
     Dates: start: 20210928, end: 20210928
  5. ARGININE\LYSINE [Suspect]
     Active Substance: ARGININE\LYSINE
     Dosage: 1 L
     Route: 065
     Dates: start: 20211125, end: 20211125
  6. ARGININE\LYSINE [Suspect]
     Active Substance: ARGININE\LYSINE
     Dosage: 1 L
     Route: 065
     Dates: start: 20220126, end: 20220126
  7. ONDANSETRON [Suspect]
     Active Substance: ONDANSETRON
     Indication: Small intestine neuroendocrine tumour
     Dosage: 8 MG
     Route: 065
     Dates: start: 20210928, end: 20210928
  8. ONDANSETRON [Suspect]
     Active Substance: ONDANSETRON
     Dosage: 8 MG
     Route: 065
     Dates: start: 20211125, end: 20211125
  9. ONDANSETRON [Suspect]
     Active Substance: ONDANSETRON
     Dosage: 8 MG
     Route: 065
     Dates: start: 20220126, end: 20220126
  10. CREON [Concomitant]
     Active Substance: PANCRELIPASE AMYLASE\PANCRELIPASE LIPASE\PANCRELIPASE PROTEASE
     Indication: Product used for unknown indication
     Dosage: UNK
     Route: 065
  11. LANREOTIDE ACETATE [Concomitant]
     Active Substance: LANREOTIDE ACETATE
     Indication: Product used for unknown indication
     Dosage: UNK
     Route: 065

REACTIONS (1)
  - Thrombocytopenia [Not Recovered/Not Resolved]

NARRATIVE: CASE EVENT DATE: 20220126
